FAERS Safety Report 12986720 (Version 1)
Quarter: 2016Q4

REPORT INFORMATION
  Report Type: Spontaneous
  Country: US (occurrence: US)
  Receive Date: 20161129
  Receipt Date: 20161129
  Transmission Date: 20170207
  Serious: Yes (Hospitalization, Disabling)
  Sender: FDA-Public Use
  Company Number: None

PATIENT
  Age: 41 Year
  Sex: Male
  Weight: 119.75 kg

DRUGS (27)
  1. NAPROXEN (NAPROSYN) [Concomitant]
  2. MAGNESIUM HYDROXIDE. [Concomitant]
     Active Substance: MAGNESIUM HYDROXIDE
  3. NICOTINE. [Concomitant]
     Active Substance: NICOTINE
  4. HYDROCHLOROTHIAZIDE (HCTZ) [Concomitant]
     Active Substance: HYDROCHLOROTHIAZIDE
  5. HALOPERIDOL (HALDOL) [Concomitant]
  6. COUGH DROP (HALLS) [Concomitant]
  7. CALCIUM CARBONATE. [Concomitant]
     Active Substance: CALCIUM CARBONATE
  8. METFORMIN (GLUCOPHAGE) [Concomitant]
  9. CLONIDINE (CATAPRES) [Concomitant]
  10. EPSOM SALT [Concomitant]
     Active Substance: MAGNESIUM SULFATE
  11. HALDOL [Suspect]
     Active Substance: HALOPERIDOL
     Indication: AGITATION
     Route: 048
     Dates: start: 20161010, end: 20161124
  12. BENZTROPINE (COGENTIN) [Concomitant]
  13. DIVALPROEX SODIUM (DEPAKOTE) [Concomitant]
  14. NICOTINE POLACRILEX [Concomitant]
     Active Substance: NICOTINE
  15. DIVALPROEX ER (DEPAKOTE ER) [Concomitant]
  16. SELENIUM SULFIDE. [Concomitant]
     Active Substance: SELENIUM SULFIDE
  17. ACETAMINOPHEN-ASPIRIN/CAFFEINE [Concomitant]
  18. LOPERAMIDE (IMODIUM) [Concomitant]
  19. HALDOL [Suspect]
     Active Substance: HALOPERIDOL
     Indication: ACUTE PSYCHOSIS
     Route: 048
     Dates: start: 20161010, end: 20161124
  20. PROPRANOLOL ER (INDERAL LA) [Concomitant]
  21. GLIPIZIDE ER (GLUCOTROL XL) [Concomitant]
  22. MENTHOL-ZINC OXIDE [Concomitant]
  23. ATORVASTATIN CALCIUM (LIPITOR) [Concomitant]
  24. LISINOPRIL (PRINIVIL/ZESTRIL) [Concomitant]
  25. DIPHENHYDRAMINE (BENADRYL) [Concomitant]
  26. ARTIFICIAL TEARS [Concomitant]
     Active Substance: GLYCERIN\HYPROMELLOSES\POLYETHYLENE GLYCOL 400
  27. BACITRACIN. [Concomitant]
     Active Substance: BACITRACIN

REACTIONS (1)
  - Dyskinesia [None]

NARRATIVE: CASE EVENT DATE: 20161125
